FAERS Safety Report 7064725-4 (Version None)
Quarter: 2010Q4

REPORT INFORMATION
  Report Type: 
  Country: None (occurrence: None)
  Receive Date: 20101022
  Receipt Date: 20101022
  Transmission Date: 20110411
  Serious: Yes (Death)
  Sender: FDA-Public Use
  Company Number: None

PATIENT
  Sex: Female
  Weight: 120 kg

DRUGS (2)
  1. EPOGEN 20,000 U/ML AMGEN [Suspect]
     Indication: ANAEMIA
     Dosage: 1000 U IVP 3X/WEEK
     Route: 042
     Dates: start: 20100721
  2. VENOFER [Concomitant]

REACTIONS (3)
  - EMOTIONAL DISTRESS [None]
  - LOSS OF CONSCIOUSNESS [None]
  - RESPIRATORY ARREST [None]
